FAERS Safety Report 8613077-4 (Version None)
Quarter: 2012Q3

REPORT INFORMATION
  Report Type: 
  Country: None (occurrence: None)
  Receive Date: 20120822
  Receipt Date: 20120815
  Transmission Date: 20120928
  Serious: Yes (Life-Threatening, Other)
  Sender: FDA-Public Use
  Company Number: US-GILEAD-2011-0039340

PATIENT
  Age: 23 Year
  Sex: Female

DRUGS (5)
  1. EMTRICITABINE/TENOFOVIR DISOPROXIL FUMARATE [Suspect]
     Dosage: UNK
     Dates: start: 20101201, end: 20110112
  2. MEDROXYPROGESTERONE [Concomitant]
     Dates: start: 20090815, end: 20101215
  3. EMTRICITABINE/TENOFOVIR DISOPROXIL FUMARATE [Suspect]
     Indication: PROPHYLAXIS AGAINST HIV INFECTION
     Dosage: UNK
     Dates: start: 20100505, end: 20101201
  4. IBUPROFEN [Concomitant]
     Dates: start: 20110406
  5. EMTRICITABINE/TENOFOVIR DISOPROXIL FUMARATE [Suspect]
     Dosage: UNK
     Dates: start: 20110601

REACTIONS (8)
  - PREGNANCY [None]
  - ABORTION SPONTANEOUS [None]
  - HEADACHE [None]
  - MATERNAL EXPOSURE DURING PREGNANCY [None]
  - ABORTION INCOMPLETE [None]
  - DIZZINESS [None]
  - VAGINAL HAEMORRHAGE [None]
  - ABDOMINAL PAIN [None]
